FAERS Safety Report 11038845 (Version 1)
Quarter: 2015Q2

REPORT INFORMATION
  Report Type: Spontaneous
  Country: CN (occurrence: CN)
  Receive Date: 20150416
  Receipt Date: 20150416
  Transmission Date: 20150821
  Serious: Yes (Hospitalization, Other)
  Sender: FDA-Public Use
  Company Number: CN-PFIZER INC-2015128077

PATIENT
  Age: 69 Year
  Sex: Female
  Weight: 45 kg

DRUGS (1)
  1. ZOLOFT [Suspect]
     Active Substance: SERTRALINE HYDROCHLORIDE
     Indication: DEPRESSION
     Dosage: 100 MG, 1X/DAY
     Route: 048
     Dates: start: 20140724, end: 20140828

REACTIONS (5)
  - Bruxism [Recovering/Resolving]
  - Eating disorder [Recovering/Resolving]
  - Tongue paralysis [Recovering/Resolving]
  - Condition aggravated [Recovering/Resolving]
  - Glossodynia [Recovering/Resolving]

NARRATIVE: CASE EVENT DATE: 20140820
